FAERS Safety Report 15957338 (Version 1)
Quarter: 2019Q1

REPORT INFORMATION
  Report Type: Spontaneous
  Country: US (occurrence: US)
  Receive Date: 20190213
  Receipt Date: 20190213
  Transmission Date: 20190417
  Serious: No
  Sender: FDA-Public Use
  Company Number: US-B.I. PHARMACEUTICALS,INC./RIDGEFIELD-2019-BI-005156

PATIENT
  Age: 52 Year
  Sex: Male

DRUGS (6)
  1. JARDIANCE [Suspect]
     Active Substance: EMPAGLIFLOZIN
     Indication: DIABETES MELLITUS
     Dosage: FORM STRENGTH: 25 MG; FORMULATION: TABLET? ADMINISTRATION :YES ?ACTION(S): DOSE NOT CHANGED
     Route: 048
     Dates: start: 20190119
  2. BYSTOLIC [Concomitant]
     Active Substance: NEBIVOLOL HYDROCHLORIDE
     Indication: HYPERTENSION
     Dosage: 1 TABLET ONCE A DAY;  FORM STRENGTH: 10 MG; FORMULATION: TABLET
     Route: 048
  3. DICLOFENAC [Concomitant]
     Active Substance: DICLOFENAC
     Indication: ARTHRALGIA
     Dosage: 1 TABLET TWICE A DAY;  FORM STRENGTH: 75 MG; FORMULATION: TABLET
     Route: 048
  4. LOPERAMIDE [Concomitant]
     Active Substance: LOPERAMIDE
     Indication: DIARRHOEA
     Dosage: 1 TABLET TWICE A DAY;  FORM STRENGTH: 2 MG; FORMULATION: TABLET
     Route: 048
  5. GABAPENTIN. [Concomitant]
     Active Substance: GABAPENTIN
     Indication: MUSCLE SPASMS
     Dosage: 1 CAPSULE TWICE A DAY;  FORM STRENGTH: 400 MG; FORMULATION: CAPSULE
     Route: 048
  6. LANZOPRAZOLE [Concomitant]
     Active Substance: LANSOPRAZOLE
     Indication: GASTROOESOPHAGEAL REFLUX DISEASE
     Dosage: 1 CAPSULE ONCE A DAY;  FORM STRENGTH: 30 MG; FORMULATION: CAPSULE
     Route: 048

REACTIONS (1)
  - Visual impairment [Not Recovered/Not Resolved]

NARRATIVE: CASE EVENT DATE: 201901
